FAERS Safety Report 23777577 (Version 1)
Quarter: 2024Q2

REPORT INFORMATION
  Report Type: Spontaneous
  Country: AR (occurrence: AR)
  Receive Date: 20240424
  Receipt Date: 20240424
  Transmission Date: 20240716
  Serious: Yes (Other)
  Sender: FDA-Public Use
  Company Number: AR-STERISCIENCE B.V.-2024-ST-000479

PATIENT
  Age: 58 Year
  Sex: Female

DRUGS (6)
  1. VANCOMYCIN [Suspect]
     Active Substance: VANCOMYCIN
     Indication: Peritonitis bacterial
     Dosage: UNK
     Route: 065
  2. VANCOMYCIN [Suspect]
     Active Substance: VANCOMYCIN
     Indication: Staphylococcal infection
  3. AMIKACIN [Suspect]
     Active Substance: AMIKACIN
     Indication: Peritonitis bacterial
     Dosage: UNK
     Route: 065
  4. AMIKACIN [Suspect]
     Active Substance: AMIKACIN
     Indication: Staphylococcal infection
  5. NYSTATIN [Suspect]
     Active Substance: NYSTATIN
     Indication: Peritonitis bacterial
     Dosage: UNK
     Route: 065
  6. NYSTATIN [Suspect]
     Active Substance: NYSTATIN
     Indication: Staphylococcal infection

REACTIONS (1)
  - Drug ineffective [Unknown]
